FAERS Safety Report 9669189 (Version 1)
Quarter: 2013Q4

REPORT INFORMATION
  Report Type: Spontaneous
  Country: US (occurrence: US)
  Receive Date: 20131105
  Receipt Date: 20131105
  Transmission Date: 20140711
  Serious: Yes (Hospitalization)
  Sender: FDA-Public Use
  Company Number: US-ROCHE-1296370

PATIENT
  Sex: Male

DRUGS (3)
  1. PEGASYS [Suspect]
     Indication: CHRONIC HEPATITIS C
     Route: 058
     Dates: start: 20130517
  2. PEGASYS [Suspect]
     Route: 065
  3. COPEGUS [Suspect]
     Indication: CHRONIC HEPATITIS C
     Dosage: DIVIDED DOSES, 400/400
     Route: 065
     Dates: start: 20130517

REACTIONS (4)
  - Ammonia increased [Unknown]
  - Memory impairment [Unknown]
  - Gait disturbance [Unknown]
  - Weight decreased [Unknown]
